FAERS Safety Report 21058676 (Version 2)
Quarter: 2022Q3

REPORT INFORMATION
  Report Type: Spontaneous
  Country: US (occurrence: US)
  Receive Date: 20220708
  Receipt Date: 20220725
  Transmission Date: 20221027
  Serious: Yes (Hospitalization, Other)
  Sender: FDA-Public Use
  Company Number: US-BAYER-2022A091455

PATIENT
  Age: 21 Year
  Sex: Female

DRUGS (2)
  1. ESTRADIOL HEMIHYDRATE [Suspect]
     Active Substance: ESTRADIOL HEMIHYDRATE
     Indication: Hormone replacement therapy
     Dosage: 1 DF, OW
     Route: 062
     Dates: start: 2021
  2. SEMAGLUTIDE [Concomitant]
     Active Substance: SEMAGLUTIDE
     Indication: Weight decreased
     Dosage: UNK
     Dates: start: 202112

REACTIONS (2)
  - Idiopathic intracranial hypertension [None]
  - Papilloedema [None]

NARRATIVE: CASE EVENT DATE: 20211101
